FAERS Safety Report 23482151 (Version 1)
Quarter: 2024Q1

REPORT INFORMATION
  Report Type: Report from Study
  Country: JP (occurrence: JP)
  Receive Date: 20240205
  Receipt Date: 20240205
  Transmission Date: 20240409
  Serious: Yes (Hospitalization)
  Sender: FDA-Public Use
  Company Number: JP-ORPHANEU-2024000753

PATIENT

DRUGS (18)
  1. CARBAGLU [Suspect]
     Active Substance: CARGLUMIC ACID
     Indication: Hyperammonaemia
     Dosage: 100 MG, BID
     Route: 048
     Dates: start: 20190717, end: 20190820
  2. CARBAGLU [Suspect]
     Active Substance: CARGLUMIC ACID
     Indication: Methylmalonic acidaemia
     Dosage: 150 MG, BID
     Route: 048
     Dates: start: 20190821, end: 20191014
  3. CARBAGLU [Suspect]
     Active Substance: CARGLUMIC ACID
     Dosage: 200 MG, BID
     Route: 048
     Dates: start: 20191015, end: 20191124
  4. CARBAGLU [Suspect]
     Active Substance: CARGLUMIC ACID
     Dosage: 250 MG, BID
     Route: 048
     Dates: start: 20191125, end: 20191223
  5. CARBAGLU [Suspect]
     Active Substance: CARGLUMIC ACID
     Dosage: 300 MG, BID
     Route: 048
     Dates: start: 20191224, end: 20200219
  6. CARBAGLU [Suspect]
     Active Substance: CARGLUMIC ACID
     Dosage: 500 MG, BID
     Route: 048
     Dates: start: 20200220, end: 20201105
  7. CARBAGLU [Suspect]
     Active Substance: CARGLUMIC ACID
     Dosage: 600 MG, BID
     Route: 048
     Dates: start: 20201106
  8. ERYTHROPOIETIN [Concomitant]
     Active Substance: ERYTHROPOIETIN
     Indication: Disease complication
     Dosage: 750IU/INJECTION
     Dates: end: 20190719
  9. Incremin [Concomitant]
     Indication: Disease complication
     Dosage: 150
     Route: 048
     Dates: start: 20190717, end: 20190826
  10. Hycobal [Concomitant]
     Indication: Product used for unknown indication
     Dosage: 1000 MICROGRAM
     Route: 048
     Dates: start: 20190629
  11. BIOTIN [Concomitant]
     Active Substance: BIOTIN
     Indication: Product used for unknown indication
     Dosage: 0.5MG
     Route: 048
     Dates: start: 20190702
  12. LACTULOSE [Concomitant]
     Active Substance: LACTULOSE
     Indication: Product used for unknown indication
     Dosage: 2ML
     Route: 048
     Dates: start: 20190718, end: 20210824
  13. LACTULOSE [Concomitant]
     Active Substance: LACTULOSE
     Dosage: 1 ML
     Route: 048
     Dates: start: 20210825, end: 20220116
  14. LEVOCARNITINE [Concomitant]
     Active Substance: LEVOCARNITINE
     Indication: Product used for unknown indication
     Dosage: 13 ML
     Route: 048
     Dates: start: 20200803, end: 20201001
  15. LEVOCARNITINE [Concomitant]
     Active Substance: LEVOCARNITINE
     Dosage: 14 ML
     Route: 048
     Dates: start: 20201002, end: 20201213
  16. LEVOCARNITINE [Concomitant]
     Active Substance: LEVOCARNITINE
     Dosage: 16 ML
     Route: 048
     Dates: start: 20201214, end: 20210307
  17. LEVOCARNITINE [Concomitant]
     Active Substance: LEVOCARNITINE
     Dosage: 20 ML
     Route: 048
     Dates: start: 20210308, end: 20210606
  18. LEVOCARNITINE [Concomitant]
     Active Substance: LEVOCARNITINE
     Dosage: 22 ML
     Route: 048
     Dates: start: 20210607, end: 20211010

REACTIONS (1)
  - Upper respiratory tract inflammation [Recovered/Resolved]

NARRATIVE: CASE EVENT DATE: 20210728
